FAERS Safety Report 6302513-4 (Version None)
Quarter: 2009Q3

REPORT INFORMATION
  Report Type: 
  Country: None (occurrence: None)
  Receive Date: 20090810
  Receipt Date: 20090727
  Transmission Date: 20100115
  Serious: Yes (Hospitalization, Other)
  Sender: FDA-Public Use
  Company Number: JP-NOVOPROD-289847

PATIENT
  Age: 56 Year
  Sex: Female

DRUGS (1)
  1. NOVOLIN R [Suspect]
     Indication: DRUG USE FOR UNKNOWN INDICATION
     Dosage: 30-40 UNITS
     Dates: start: 20070824, end: 20070901

REACTIONS (5)
  - MOVEMENT DISORDER [None]
  - NAUSEA [None]
  - NYSTAGMUS [None]
  - PAIN IN EXTREMITY [None]
  - WERNICKE'S ENCEPHALOPATHY [None]
